FAERS Safety Report 4327543-3 (Version None)
Quarter: 2004Q1

REPORT INFORMATION
  Report Type: 
  Country: None (occurrence: None)
  Receive Date: 20040330
  Receipt Date: 20040330
  Transmission Date: 20041129
  Serious: Yes (Hospitalization)
  Sender: FDA-Public Use
  Company Number: None

PATIENT
  Age: 68 Year
  Sex: Male
  Weight: 130 kg

DRUGS (7)
  1. KETOCONAZOLE [Suspect]
     Indication: PROSTATE CANCER
     Dates: start: 20030301, end: 20030424
  2. NEPHROCAPS [Concomitant]
  3. ZOMETA [Concomitant]
  4. LUPRON [Concomitant]
  5. FOLTX [Concomitant]
  6. VITAMIN C [Concomitant]
  7. TYLENOL (CAPLET) [Concomitant]

REACTIONS (3)
  - ASTHENIA [None]
  - JAUNDICE [None]
  - PAIN [None]
